FAERS Safety Report 25828067 (Version 1)
Quarter: 2025Q3

REPORT INFORMATION
  Report Type: Spontaneous
  Country: US (occurrence: None)
  Receive Date: 20250921
  Receipt Date: 20250921
  Transmission Date: 20251020
  Serious: No
  Sender: Harrow Health
  Company Number: US-HARROW-HAR-2025-US-00712

PATIENT
  Sex: Female

DRUGS (1)
  1. VEVYE [Suspect]
     Active Substance: CYCLOSPORINE
     Route: 047

REACTIONS (5)
  - Swelling of eyelid [Recovering/Resolving]
  - Eyelid rash [Recovered/Resolved]
  - Eye pruritus [Recovering/Resolving]
  - Dry eye [Unknown]
  - Vision blurred [Recovering/Resolving]
